FAERS Safety Report 15479602 (Version 2)
Quarter: 2018Q4

REPORT INFORMATION
  Report Type: Spontaneous
  Country: IT (occurrence: IT)
  Receive Date: 20181009
  Receipt Date: 20181113
  Transmission Date: 20190205
  Serious: Yes (Other)
  Sender: FDA-Public Use
  Company Number: IT-MYLANLABS-2018M1074266

PATIENT
  Age: 75 Year
  Weight: 78 kg

DRUGS (3)
  1. QUETIAPINA MYLAN 300 MG COMPRESSE A RILASCIO PROLUNGATO [Suspect]
     Active Substance: QUETIAPINE
     Indication: SCHIZOPHRENIA
     Dosage: 300 MG, QD
     Dates: start: 20180213, end: 20180228
  2. QUETIAPINE. [Suspect]
     Active Substance: QUETIAPINE
     Indication: SCHIZOPHRENIA
     Dosage: 150 MG, QD
     Dates: start: 20180213, end: 20180228
  3. QUETIAPINA MYLAN 300 MG COMPRESSE A RILASCIO PROLUNGATO [Suspect]
     Active Substance: QUETIAPINE
     Indication: SCHIZOPHRENIA

REACTIONS (3)
  - Drug ineffective [Unknown]
  - Delusion [Unknown]
  - Insomnia [Unknown]

NARRATIVE: CASE EVENT DATE: 20180228
